FAERS Safety Report 5636277-4 (Version None)
Quarter: 2008Q1

REPORT INFORMATION
  Report Type: 
  Country: None (occurrence: None)
  Receive Date: 20080225
  Receipt Date: 20080124
  Transmission Date: 20080703
  Serious: No
  Sender: FDA-Public Use
  Company Number: US-BAYER-200812506NA

PATIENT
  Age: 16 Year
  Sex: Female
  Weight: 75 kg

DRUGS (1)
  1. YAZ [Suspect]
     Indication: AMENORRHOEA
     Route: 048
     Dates: start: 20080101

REACTIONS (1)
  - AMENORRHOEA [None]
